FAERS Safety Report 20236815 (Version 2)
Quarter: 2022Q1

REPORT INFORMATION
  Report Type: Spontaneous
  Country: PL (occurrence: PL)
  Receive Date: 20211228
  Receipt Date: 20220125
  Transmission Date: 20220423
  Serious: Yes (Hospitalization, Other)
  Sender: FDA-Public Use
  Company Number: PL-SUN PHARMACEUTICAL INDUSTRIES LTD-2021RR-319711

PATIENT
  Age: 42 Year
  Sex: Female

DRUGS (28)
  1. LAMOTRIGINE [Suspect]
     Active Substance: LAMOTRIGINE
     Indication: Bipolar disorder
     Dosage: 600 MG, BID (2 TIMES 600 MG )
     Route: 065
     Dates: start: 2013
  2. LAMOTRIGINE [Suspect]
     Active Substance: LAMOTRIGINE
     Dosage: 200 MG, QD
     Route: 065
  3. LAMOTRIGINE [Suspect]
     Active Substance: LAMOTRIGINE
     Dosage: 200 MG, QD (2 TIMES 100 MG)
     Route: 065
     Dates: start: 2017
  4. LAMOTRIGINE [Suspect]
     Active Substance: LAMOTRIGINE
     Dosage: UNK
     Route: 065
  5. CARBAMAZEPINE [Suspect]
     Active Substance: CARBAMAZEPINE
     Indication: Bipolar disorder
     Dosage: 1200 MG, QD (2 TIMES 600 MG PER DAY)
     Route: 065
     Dates: start: 201707
  6. CARBAMAZEPINE [Suspect]
     Active Substance: CARBAMAZEPINE
     Indication: Bipolar disorder
     Dosage: 600 MG, QD (DOSES UP TO 600 MG PER DAY)
     Route: 065
     Dates: start: 2013
  7. LITHIUM [Suspect]
     Active Substance: LITHIUM
     Indication: Bipolar disorder
     Dosage: GRADUALLY INCREASED TO 1000 MG
     Route: 065
     Dates: start: 2017
  8. LITHIUM [Suspect]
     Active Substance: LITHIUM
     Dosage: 1000 MG, 1D
     Route: 065
  9. VENLAFAXINE [Suspect]
     Active Substance: VENLAFAXINE HYDROCHLORIDE
     Indication: Depression
     Dosage: 75 MG, QD (DOSES UP TO 75 MG PER DAY)
     Route: 065
     Dates: start: 2012
  10. OLANZAPINE [Suspect]
     Active Substance: OLANZAPINE
     Indication: Bipolar disorder
     Dosage: 20 MG, QD (20 MILLIGRAM PER NIGHT)
     Route: 065
     Dates: start: 2013
  11. OLANZAPINE [Suspect]
     Active Substance: OLANZAPINE
     Dosage: UNK
     Route: 065
  12. MIRTAZAPINE [Suspect]
     Active Substance: MIRTAZAPINE
     Indication: Depression
     Dosage: 30 MG, QD (DOSES UPTO 30 MG PER DAY)
     Route: 065
     Dates: start: 2012
  13. MIRTAZAPINE [Suspect]
     Active Substance: MIRTAZAPINE
     Dosage: UNK
     Route: 065
  14. QUETIAPINE [Suspect]
     Active Substance: QUETIAPINE
     Indication: Bipolar disorder
     Dosage: 100 MG (100 MILLIGRAM, OF AN IMMEDIATE-RELEASE FORMULATION)
     Route: 065
  15. QUETIAPINE [Suspect]
     Active Substance: QUETIAPINE
     Indication: Depression
     Dosage: 400 MG, QD (400 MILLIGRAM, DAILY, EXTENDED-RELEASE)
     Route: 065
  16. QUETIAPINE [Suspect]
     Active Substance: QUETIAPINE
     Dosage: UNK, (UP TO 600 MG PER DAY)
     Route: 065
     Dates: start: 2015
  17. CITALOPRAM [Suspect]
     Active Substance: CITALOPRAM HYDROBROMIDE
     Indication: Depression
     Dosage: UNK
     Route: 065
  18. QUETIAPINE [Suspect]
     Active Substance: QUETIAPINE
     Indication: Depression
     Dosage: 400 MILLIGRAM, DAILY, EXTENDED-RELEASE
     Route: 065
  19. QUETIAPINE [Suspect]
     Active Substance: QUETIAPINE
     Indication: Bipolar disorder
  20. CITALOPRAM [Suspect]
     Active Substance: CITALOPRAM HYDROBROMIDE
     Indication: Depression
     Dosage: 20 MG, QD (UP TO 20 MG PER DAY)
     Route: 065
     Dates: start: 2015
  21. QUETIAPINE [Suspect]
     Active Substance: QUETIAPINE
     Indication: Bipolar disorder
     Dosage: 500 MG, 1D (EXTENDED-RELEASE 400 MG PER DAY+100 MG IMMEDIATE-RELEASE)
     Route: 065
     Dates: start: 2017
  22. QUETIAPINE [Suspect]
     Active Substance: QUETIAPINE
     Indication: Depression
  23. QUETIAPINE [Suspect]
     Active Substance: QUETIAPINE
     Indication: Depression
     Dosage: UP TO 700 MG PER DAY
     Route: 065
     Dates: start: 202107
  24. QUETIAPINE [Suspect]
     Active Substance: QUETIAPINE
     Indication: Bipolar disorder
  25. QUETIAPINE [Suspect]
     Active Substance: QUETIAPINE
     Indication: Depression
     Dosage: 100 MILLIGRAM, OF AN IMMEDIATE-RELEASE FORMULATION
     Route: 065
  26. QUETIAPINE [Suspect]
     Active Substance: QUETIAPINE
     Indication: Bipolar disorder
  27. MOMETASONE OINTMENT [Concomitant]
     Indication: Psoriasis
     Dosage: UNK
     Route: 061
  28. PROPRANOLOL [Concomitant]
     Active Substance: PROPRANOLOL HYDROCHLORIDE
     Indication: Tremor
     Dosage: 10 MG, QD (10 MILLIGRAM, DAILY )
     Route: 065

REACTIONS (9)
  - Therapeutic product effect incomplete [Recovered/Resolved]
  - Suicide attempt [Recovered/Resolved]
  - Suicidal ideation [Recovered/Resolved]
  - Treatment noncompliance [Recovered/Resolved]
  - Therapeutic response unexpected [Unknown]
  - Depression [Unknown]
  - Drug ineffective [Recovered/Resolved]
  - Tremor [Recovering/Resolving]
  - Mania [Recovered/Resolved]

NARRATIVE: CASE EVENT DATE: 20130101
